FAERS Safety Report 10026044 (Version 2)
Quarter: 2014Q1

REPORT INFORMATION
  Report Type: Spontaneous
  Country: FR (occurrence: FR)
  Receive Date: 20140320
  Receipt Date: 20140325
  Transmission Date: 20141002
  Serious: Yes (Hospitalization, Other)
  Sender: FDA-Public Use
  Company Number: FR-PFIZER INC-2014077356

PATIENT
  Age: 75 Year
  Sex: Female

DRUGS (11)
  1. LYRICA [Suspect]
     Dosage: UNK
     Route: 048
  2. PERINDOPRIL [Suspect]
     Dosage: UNK
     Route: 048
  3. LAROXYL [Suspect]
     Dosage: UNK
     Route: 048
     Dates: end: 20140225
  4. SERESTA [Suspect]
     Dosage: UNK
     Route: 048
  5. TRAMADOL [Suspect]
     Dosage: UNK
     Route: 048
     Dates: end: 20140225
  6. TRAMADOL [Suspect]
     Dosage: UNK
     Dates: start: 20140225
  7. MOGADON [Suspect]
     Dosage: UNK
     Route: 048
  8. BISOCE [Suspect]
     Dosage: UNK
     Route: 048
  9. SIMVASTATIN [Concomitant]
  10. CLARADOL CAFFEINE [Concomitant]
     Dosage: 500 MG
  11. COUMADINE [Concomitant]

REACTIONS (7)
  - Pulmonary embolism [Unknown]
  - Overdose [Recovering/Resolving]
  - Somnolence [Recovering/Resolving]
  - Orthostatic hypotension [Recovering/Resolving]
  - Fall [Recovering/Resolving]
  - Oxygen saturation decreased [Unknown]
  - Bradycardia [Recovering/Resolving]
